FAERS Safety Report 6729964-8 (Version None)
Quarter: 2010Q2

REPORT INFORMATION
  Report Type: 
  Country: None (occurrence: None)
  Receive Date: 20100518
  Receipt Date: 20100512
  Transmission Date: 20101027
  Serious: Yes (Other)
  Sender: FDA-Public Use
  Company Number: JP-SANOFI-AVENTIS-2010SA014451

PATIENT
  Age: 32 Year
  Sex: Female

DRUGS (9)
  1. ARAVA [Suspect]
     Indication: RHEUMATOID ARTHRITIS
     Route: 048
     Dates: start: 20031215, end: 20100312
  2. QUESTRAN [Concomitant]
  3. PREDONINE [Concomitant]
     Route: 048
  4. CLINORIL [Concomitant]
     Route: 048
     Dates: end: 20100315
  5. ALL OTHER THERAPEUTIC PRODUCTS [Concomitant]
     Route: 048
     Dates: end: 20100315
  6. GASTROM [Concomitant]
     Route: 048
     Dates: end: 20100315
  7. DIAZEPAM [Concomitant]
     Route: 048
     Dates: end: 20100315
  8. TOYOFAROL [Concomitant]
     Route: 048
     Dates: end: 20100315
  9. ACTONEL [Concomitant]
     Route: 048
     Dates: end: 20100315

REACTIONS (2)
  - ABORTION INDUCED [None]
  - DRUG EXPOSURE DURING PREGNANCY [None]
